FAERS Safety Report 5540812-4 (Version None)
Quarter: 2007Q4

REPORT INFORMATION
  Report Type: 
  Country: None (occurrence: None)
  Receive Date: 20071129
  Receipt Date: 20070718
  Transmission Date: 20080405
  Serious: Yes (Hospitalization)
  Sender: FDA-Public Use
  Company Number: US_0510123107

PATIENT
  Age: 34 Year
  Sex: Male
  Weight: 97.5 kg

DRUGS (5)
  1. ZYPREXA [Suspect]
     Indication: SCHIZOPHRENIA
     Dosage: 5 MG,; 10 MG,; 20 MG,
     Dates: start: 19961208, end: 19990921
  2. ZYPREXA [Suspect]
     Indication: SCHIZOPHRENIA
     Dosage: 5 MG,; 10 MG,; 20 MG,
     Dates: start: 19961208, end: 19990921
  3. ZYPREXA [Suspect]
     Indication: SCHIZOPHRENIA
     Dosage: 5 MG,; 10 MG,; 20 MG,
     Dates: start: 19970127
  4. VASOTEC [Concomitant]
  5. RISPERIDONE [Concomitant]

REACTIONS (4)
  - ANXIETY [None]
  - DEPRESSION [None]
  - TYPE 2 DIABETES MELLITUS [None]
  - WEIGHT INCREASED [None]
